FAERS Safety Report 18914782 (Version 1)
Quarter: 2021Q1

REPORT INFORMATION
  Report Type: Spontaneous
  Country: GB (occurrence: GB)
  Receive Date: 20210219
  Receipt Date: 20210219
  Transmission Date: 20210420
  Serious: Yes (Life-Threatening)
  Sender: FDA-Public Use
  Company Number: NVSC2021GB037179

PATIENT
  Age: 58 Year
  Sex: Male
  Weight: 95.25 kg

DRUGS (1)
  1. ADALIMUMAB [Suspect]
     Active Substance: ADALIMUMAB
     Indication: ANKYLOSING SPONDYLITIS
     Dosage: 40 MG
     Route: 051
     Dates: start: 20200101, end: 20210105

REACTIONS (5)
  - Localised infection [Recovered/Resolved with Sequelae]
  - Near death experience [Recovered/Resolved with Sequelae]
  - Red blood cell sedimentation rate increased [Recovered/Resolved with Sequelae]
  - Hypothalamo-pituitary disorder [Recovered/Resolved with Sequelae]
  - Dyspnoea [Recovered/Resolved with Sequelae]

NARRATIVE: CASE EVENT DATE: 20210110
